FAERS Safety Report 4698946-2 (Version None)
Quarter: 2005Q2

REPORT INFORMATION
  Report Type: 
  Country: None (occurrence: None)
  Receive Date: 20050622
  Receipt Date: 20050622
  Transmission Date: 20051028
  Serious: Yes (Life-Threatening, Hospitalization)
  Sender: FDA-Public Use
  Company Number: None

PATIENT
  Age: 34 Year
  Sex: Female
  Weight: 52 kg

DRUGS (6)
  1. ZIPRASIDONE [Suspect]
     Indication: AGITATION
     Dosage: 20 MG IM PRN
     Route: 042
  2. RISPERIDONE [Suspect]
     Indication: SEDATION
     Dosage: 1 MG Q HS
  3. PHENYTOIN [Concomitant]
  4. CEFTRIAXONE [Concomitant]
  5. TYLENOL [Concomitant]
  6. IBUPROFEN [Concomitant]

REACTIONS (3)
  - BODY TEMPERATURE INCREASED [None]
  - CONVULSION [None]
  - NEUROLEPTIC MALIGNANT SYNDROME [None]
